FAERS Safety Report 5511384-5 (Version None)
Quarter: 2007Q4

REPORT INFORMATION
  Report Type: 
  Country: None (occurrence: None)
  Receive Date: 20071109
  Receipt Date: 20071001
  Transmission Date: 20080405
  Serious: No
  Sender: FDA-Public Use
  Company Number: A0685343A

PATIENT

DRUGS (2)
  1. ALTABAX [Suspect]
     Route: 061
  2. UNKNOWN [Concomitant]

REACTIONS (1)
  - PAIN [None]
